FAERS Safety Report 12346100 (Version 1)
Quarter: 2016Q2

REPORT INFORMATION
  Report Type: Spontaneous
  Country: US (occurrence: None)
  Receive Date: 20160506
  Receipt Date: 20160506
  Transmission Date: 20160815
  Serious: Yes (Hospitalization)
  Sender: FDA-Public Use
  Company Number: None

PATIENT
  Age: 58 Year
  Sex: Male
  Weight: 133 kg

DRUGS (10)
  1. HYDRACHLOROTHIAZIDE [Concomitant]
  2. SIMVASTATIN. [Concomitant]
     Active Substance: SIMVASTATIN
  3. MEMANTINE HYDROCHLORIDE. [Suspect]
     Active Substance: MEMANTINE HYDROCHLORIDE
     Dates: end: 20160424
  4. OCCUVITE [Concomitant]
  5. XANAX [Concomitant]
     Active Substance: ALPRAZOLAM
  6. ZOFRAN [Concomitant]
     Active Substance: ONDANSETRON HYDROCHLORIDE
  7. LYSINE [Concomitant]
     Active Substance: LYSINE
  8. COMPAZINE [Concomitant]
     Active Substance: PROCHLORPERAZINE MALEATE
  9. COENZYME Q [Concomitant]
  10. LEVOTHYROXINE. [Concomitant]
     Active Substance: LEVOTHYROXINE

REACTIONS (5)
  - Headache [None]
  - Brain herniation [None]
  - Disease progression [None]
  - Ataxia [None]
  - Brain cancer metastatic [None]

NARRATIVE: CASE EVENT DATE: 20160424
